FAERS Safety Report 5340125-X (Version None)
Quarter: 2007Q2

REPORT INFORMATION
  Report Type: 
  Country: None (occurrence: None)
  Receive Date: 20070525
  Receipt Date: 20070525
  Transmission Date: 20071010
  Serious: Yes (Hospitalization)
  Sender: FDA-Public Use
  Company Number: None

PATIENT
  Age: 71 Year
  Sex: Female
  Weight: 70 kg

DRUGS (14)
  1. HEPARIN [Suspect]
     Indication: CORONARY ARTERY BYPASS
     Dosage: 50 UNITS Q8H IV FLUSH
     Route: 042
     Dates: start: 20061006, end: 20061016
  2. HEPARIN [Suspect]
     Indication: INTRAVENOUS CATHETER MANAGEMENT
     Dosage: 50 UNITS Q8H IV FLUSH
     Route: 042
     Dates: start: 20061006, end: 20061016
  3. HEPARIN [Suspect]
     Indication: CORONARY ARTERY BYPASS
     Dosage: 50 UNITS Q8H IV FLUSH
     Route: 042
     Dates: start: 20061006
  4. HEPARIN [Suspect]
     Indication: INTRAVENOUS CATHETER MANAGEMENT
     Dosage: 50 UNITS Q8H IV FLUSH
     Route: 042
     Dates: start: 20061006
  5. HEPARIN [Suspect]
     Indication: CORONARY ARTERY BYPASS
     Dosage: 50 UNITS Q8H IV FLUSH
     Route: 042
     Dates: start: 20061009
  6. HEPARIN [Suspect]
     Indication: INTRAVENOUS CATHETER MANAGEMENT
     Dosage: 50 UNITS Q8H IV FLUSH
     Route: 042
     Dates: start: 20061009
  7. AMIODARONE HCL [Concomitant]
  8. LASIX [Concomitant]
  9. SYNTHROID [Concomitant]
  10. SIMVASTATIN [Concomitant]
  11. LEVOFLOXACIN [Concomitant]
  12. INSULIN [Concomitant]
  13. INTEGRILIN [Concomitant]
  14. .. [Concomitant]

REACTIONS (11)
  - CARDIAC ARREST [None]
  - CARDIAC FAILURE CONGESTIVE [None]
  - CORONARY ARTERY DISEASE [None]
  - CYANOSIS [None]
  - DISSEMINATED INTRAVASCULAR COAGULATION [None]
  - EMBOLISM [None]
  - LUNG DISORDER [None]
  - RENAL DISORDER [None]
  - RENAL FAILURE ACUTE [None]
  - SEPSIS [None]
  - THROMBOCYTOPENIA [None]
